FAERS Safety Report 11695223 (Version 1)
Quarter: 2015Q4

REPORT INFORMATION
  Report Type: Spontaneous
  Country: GB (occurrence: GB)
  Receive Date: 20151103
  Receipt Date: 20151103
  Transmission Date: 20160304
  Serious: Yes (Other)
  Sender: FDA-Public Use
  Company Number: GB-ALLERGAN-1522688US

PATIENT
  Age: 83 Year
  Sex: Male

DRUGS (1)
  1. BOTOX [Suspect]
     Active Substance: ONABOTULINUMTOXINA
     Indication: OESOPHAGEAL DILATATION
     Dosage: UNK UNK, SINGLE
     Route: 030

REACTIONS (8)
  - Off label use [Unknown]
  - Muscular weakness [Unknown]
  - Eyelid ptosis [Unknown]
  - Dysphagia [Unknown]
  - Strabismus [Unknown]
  - Neuromuscular blockade [Unknown]
  - Dysarthria [Unknown]
  - Facial paresis [Unknown]
